FAERS Safety Report 4952829-9 (Version None)
Quarter: 2006Q1

REPORT INFORMATION
  Report Type: 
  Country: None (occurrence: None)
  Receive Date: 20060324
  Receipt Date: 20060309
  Transmission Date: 20060701
  Serious: Yes (Disabling)
  Sender: FDA-Public Use
  Company Number: GBWYE462113MAR06

PATIENT
  Sex: Female
  Weight: 58.8 kg

DRUGS (8)
  1. ENBREL [Suspect]
     Indication: RHEUMATOID ARTHRITIS
     Route: 058
     Dates: start: 20050101
  2. FOLIC ACID [Concomitant]
     Route: 048
     Dates: start: 20040621
  3. PREDNISOLONE [Concomitant]
     Route: 048
     Dates: start: 20031204
  4. ALENDRONATE SODIUM [Concomitant]
     Route: 048
     Dates: start: 20031204
  5. ATORVASTATIN CALCIUM [Concomitant]
     Route: 048
     Dates: start: 20060101
  6. UNSPECIFIED HORMONE REPLACEMENT THERAPY AGENT [Concomitant]
     Route: 048
  7. CALCIUM CARBONATE [Concomitant]
     Route: 048
     Dates: start: 20040308
  8. METHOTREXATE [Concomitant]
     Dates: start: 20040621

REACTIONS (2)
  - ARTHRALGIA [None]
  - CONDITION AGGRAVATED [None]
